FAERS Safety Report 4721277-9 (Version None)
Quarter: 2005Q3

REPORT INFORMATION
  Report Type: 
  Country: None (occurrence: None)
  Receive Date: 20050721
  Receipt Date: 20021206
  Transmission Date: 20060218
  Serious: No
  Sender: FDA-Public Use
  Company Number: US-BRISTOL-MYERS SQUIBB COMPANY-12131314

PATIENT
  Age: 79 Year
  Sex: Male
  Weight: 77 kg

DRUGS (9)
  1. COUMADIN [Suspect]
     Indication: MALAISE
     Dosage: 2MG AND 3MG ALTERNATING DAILY; ON THERAPY FOR OVER 5 YEARS
     Dates: start: 20010701
  2. COUMADIN [Suspect]
     Indication: MYOCARDIAL INFARCTION
     Dosage: 2MG AND 3MG ALTERNATING DAILY; ON THERAPY FOR OVER 5 YEARS
     Dates: start: 20010701
  3. ATIVAN [Concomitant]
  4. ENALAPRIL [Concomitant]
  5. DILTIAZEM HCL [Concomitant]
  6. POTASSIUM CHLORIDE [Concomitant]
  7. FUROSEMIDE [Concomitant]
  8. DIGOXIN [Concomitant]
  9. MULTI-VITAMIN [Concomitant]

REACTIONS (5)
  - DIFFICULTY IN WALKING [None]
  - HYPOAESTHESIA [None]
  - OEDEMA PERIPHERAL [None]
  - PARAESTHESIA [None]
  - SKIN DISORDER [None]
